FAERS Safety Report 17628658 (Version 6)
Quarter: 2020Q2

REPORT INFORMATION
  Report Type: Spontaneous
  Country: US (occurrence: US)
  Receive Date: 20200406
  Receipt Date: 20200522
  Transmission Date: 20200713
  Serious: Yes (Other)
  Sender: FDA-Public Use
  Company Number: US-HTU-2020US020399

PATIENT
  Age: 60 Year
  Sex: Male

DRUGS (1)
  1. VALCHLOR [Suspect]
     Active Substance: MECHLORETHAMINE
     Indication: CUTANEOUS T-CELL LYMPHOMA
     Dosage: UNK, SINGLE
     Route: 061
     Dates: start: 20200311, end: 20200427

REACTIONS (17)
  - Application site pruritus [Not Recovered/Not Resolved]
  - Skin erosion [Not Recovered/Not Resolved]
  - Papule [Not Recovered/Not Resolved]
  - Scab [Not Recovered/Not Resolved]
  - Application site pain [Not Recovered/Not Resolved]
  - Application site erythema [Not Recovered/Not Resolved]
  - Scratch [Not Recovered/Not Resolved]
  - Dry skin [Not Recovered/Not Resolved]
  - Application site irritation [Not Recovered/Not Resolved]
  - Application site erosion [Not Recovered/Not Resolved]
  - Blister [Not Recovered/Not Resolved]
  - Application site papules [Not Recovered/Not Resolved]
  - Product administration error [Unknown]
  - Application site discolouration [Not Recovered/Not Resolved]
  - Application site exfoliation [Not Recovered/Not Resolved]
  - Application site rash [Not Recovered/Not Resolved]
  - Erythema [Not Recovered/Not Resolved]

NARRATIVE: CASE EVENT DATE: 2020
